FAERS Safety Report 6766080-3 (Version None)
Quarter: 2010Q2

REPORT INFORMATION
  Report Type: 
  Country: None (occurrence: None)
  Receive Date: 20100611
  Receipt Date: 20100607
  Transmission Date: 20101027
  Serious: Yes (Life-Threatening)
  Sender: FDA-Public Use
  Company Number: D0067417A

PATIENT
  Sex: Male

DRUGS (4)
  1. LAMICTAL [Suspect]
     Dosage: 150MG PER DAY
     Route: 048
  2. OXCARBAZEPINE [Concomitant]
     Indication: EPILEPSY
     Dosage: 300MG THREE TIMES PER DAY
     Route: 048
  3. VALPROATE SODIUM [Concomitant]
     Indication: EPILEPSY
     Dosage: 300MG TWICE PER DAY
     Route: 048
  4. RISPERDAL [Concomitant]
     Indication: SCHIZOPHRENIA
     Dosage: 1G THREE TIMES PER DAY
     Route: 048

REACTIONS (10)
  - ANAEMIA [None]
  - ASTHENIA [None]
  - ATAXIA [None]
  - BLOOD IMMUNOGLOBULIN G DECREASED [None]
  - FULL BLOOD COUNT DECREASED [None]
  - IMMUNOGLOBULINS DECREASED [None]
  - INFECTION [None]
  - LYMPHADENOPATHY [None]
  - LYMPHOPENIA [None]
  - OEDEMA PERIPHERAL [None]
